FAERS Safety Report 6492991-2 (Version None)
Quarter: 2009Q4

REPORT INFORMATION
  Report Type: 
  Country: None (occurrence: None)
  Receive Date: 20091214
  Receipt Date: 20091204
  Transmission Date: 20100525
  Serious: Yes (Other)
  Sender: FDA-Public Use
  Company Number: US-JNJFOC-20080703957

PATIENT
  Sex: Female
  Weight: 45.36 kg

DRUGS (2)
  1. RENOVA [Suspect]
     Indication: EPHELIDES
     Route: 065
  2. RENOVA [Suspect]
     Route: 065

REACTIONS (26)
  - ABDOMINAL DISTENSION [None]
  - ABDOMINAL PAIN [None]
  - ACNE [None]
  - BLOOD CHOLESTEROL ABNORMAL [None]
  - CONSTIPATION [None]
  - DERMATITIS ALLERGIC [None]
  - DIABETES MELLITUS [None]
  - DIARRHOEA [None]
  - DRY EYE [None]
  - DYSPHAGIA [None]
  - EPSTEIN-BARR VIRUS INFECTION [None]
  - EYE INFECTION [None]
  - FACE OEDEMA [None]
  - FATIGUE [None]
  - HAEMORRHAGE [None]
  - IMPETIGO [None]
  - KERATITIS [None]
  - LEUKOCYTOCLASTIC VASCULITIS [None]
  - MIGRAINE [None]
  - OBSTRUCTIVE AIRWAYS DISORDER [None]
  - SCAR [None]
  - SILICOSIS [None]
  - SKIN DISORDER [None]
  - SPINAL DISORDER [None]
  - THERMAL BURN [None]
  - TOOTH DISORDER [None]
